FAERS Safety Report 23648897 (Version 1)
Quarter: 2024Q1

REPORT INFORMATION
  Report Type: Spontaneous
  Country: US (occurrence: None)
  Receive Date: 20240318
  Receipt Date: 20240318
  Transmission Date: 20240409
  Serious: Yes (Other)
  Sender: FDA-Public Use
  Company Number: None

PATIENT
  Age: 65 Year
  Sex: Female
  Weight: 49 kg

DRUGS (8)
  1. REPATHA [Suspect]
     Active Substance: EVOLOCUMAB
     Indication: Low density lipoprotein increased
     Dosage: FREQUENCY : MONTHLY;?
     Route: 058
  2. REPATHA [Suspect]
     Active Substance: EVOLOCUMAB
     Indication: Coronary artery disease
  3. CRESTOR [Concomitant]
     Active Substance: ROSUVASTATIN CALCIUM
  4. ASPIRIN [Concomitant]
     Active Substance: ASPIRIN
  5. B-complex ( [Concomitant]
  6. D3-Vitamin K [Concomitant]
  7. Vitamin K supplement [Concomitant]
  8. QUERCETIN [Concomitant]
     Active Substance: QUERCETIN

REACTIONS (4)
  - Angioedema [None]
  - Pruritus [None]
  - Arthralgia [None]
  - Blood pressure systolic increased [None]

NARRATIVE: CASE EVENT DATE: 20240311
